FAERS Safety Report 5443260-0 (Version None)
Quarter: 2007Q3

REPORT INFORMATION
  Report Type: 
  Country: None (occurrence: None)
  Receive Date: 20070830
  Receipt Date: 20070815
  Transmission Date: 20080115
  Serious: Yes (Other)
  Sender: FDA-Public Use
  Company Number: 2007RR-09358

PATIENT
  Age: 60 Year
  Sex: Female
  Weight: 0.7 kg

DRUGS (2)
  1. FLUCONAZOLE [Suspect]
     Indication: SYSTEMIC ANTIFUNGAL TREATMENT
     Dosage: 100 MG, QD, INTRAVENOUS; 200 MG, ORAL; 100 MG, QD
  2. SIROLIMUS (SIROLIMUS) [Suspect]
     Dosage: 1.5 MG, QD

REACTIONS (1)
  - DRUG INTERACTION [None]
